FAERS Safety Report 15002272 (Version 1)
Quarter: 2018Q2

REPORT INFORMATION
  Report Type: Spontaneous
  Country: US (occurrence: US)
  Receive Date: 20180612
  Receipt Date: 20180612
  Transmission Date: 20180711
  Serious: No
  Sender: FDA-Public Use
  Company Number: US-ELI_LILLY_AND_COMPANY-US201806003820

PATIENT
  Sex: Female

DRUGS (2)
  1. GLUCOPHAGE [Concomitant]
     Active Substance: METFORMIN HYDROCHLORIDE
     Indication: DIABETES MELLITUS
  2. BASAGLAR [Suspect]
     Active Substance: INSULIN GLARGINE
     Indication: DIABETES MELLITUS
     Dosage: 10 U, EACH EVENING
     Route: 065
     Dates: start: 20180602

REACTIONS (5)
  - Confusional state [Not Recovered/Not Resolved]
  - Sleep disorder due to a general medical condition [Unknown]
  - Delirium [Not Recovered/Not Resolved]
  - Cough [Not Recovered/Not Resolved]
  - Aphonia [Unknown]

NARRATIVE: CASE EVENT DATE: 20180603
